FAERS Safety Report 10204562 (Version 1)
Quarter: 2014Q2

REPORT INFORMATION
  Report Type: Spontaneous
  Country: US (occurrence: None)
  Receive Date: 20140527
  Receipt Date: 20140527
  Transmission Date: 20141212
  Serious: Yes (Disabling, Other)
  Sender: FDA-Public Use
  Company Number: None

PATIENT
  Age: 45 Year
  Sex: Female
  Weight: 81.19 kg

DRUGS (1)
  1. LYRICA [Suspect]
     Indication: FIBROMYALGIA
     Dosage: 1CAPSULE 2X A DAY, TWICE DAILY, TAKEN BY MOUTH
     Route: 048
     Dates: start: 20050215, end: 20140523

REACTIONS (4)
  - Euphoric mood [None]
  - Weight increased [None]
  - Blindness unilateral [None]
  - Pain [None]
